FAERS Safety Report 5318478-8 (Version None)
Quarter: 2007Q2

REPORT INFORMATION
  Report Type: 
  Country: None (occurrence: None)
  Receive Date: 20070501
  Receipt Date: 20070420
  Transmission Date: 20071010
  Serious: Yes (Hospitalization)
  Sender: FDA-Public Use
  Company Number: GXKR2007GB03690

PATIENT
  Age: 77 Year
  Sex: Female

DRUGS (11)
  1. BISOPROLOL FUMARATE [Suspect]
     Dosage: 5 MG, QD, ORAL
     Route: 048
  2. SPIRONOLACTONE [Suspect]
     Dosage: 25 MG, QD, ORAL
     Route: 048
  3. ALENDRONIC ACID (ALENDRONIC ACID) [Concomitant]
  4. ALLOPURINOL [Concomitant]
  5. ASPIRIN [Concomitant]
  6. ATORVASTATIN CALCIUM [Concomitant]
  7. FUROSEMIDE [Concomitant]
  8. GTN (GLYCERYL TRINITRATE) [Concomitant]
  9. LANSOPRAZOLE [Concomitant]
  10. LEVOTHYROXINE SODIUM [Concomitant]
  11. VALSARTAN [Concomitant]

REACTIONS (3)
  - ABDOMINAL PAIN [None]
  - NAUSEA [None]
  - RENAL IMPAIRMENT [None]
